FAERS Safety Report 8392029-6 (Version None)
Quarter: 2012Q2

REPORT INFORMATION
  Report Type: 
  Country: None (occurrence: None)
  Receive Date: 20120529
  Receipt Date: 20120524
  Transmission Date: 20120825
  Serious: Yes (Hospitalization)
  Sender: FDA-Public Use
  Company Number: BE-ROCHE-1040930

PATIENT
  Sex: Male
  Weight: 80 kg

DRUGS (9)
  1. CORDARONE [Concomitant]
     Indication: CARDIAC FAILURE
     Route: 048
     Dates: start: 20110501
  2. XELODA [Suspect]
     Indication: NEOPLASM MALIGNANT
     Route: 048
     Dates: start: 20120126, end: 20120209
  3. METOPROLOL SUCCINATE [Concomitant]
     Indication: CARDIAC FAILURE
     Route: 048
     Dates: start: 20110501
  4. PANTOMED (PANTOPRAZOLE) [Concomitant]
     Indication: PROPHYLAXIS AGAINST GASTROINTESTINAL ULCER
     Route: 048
     Dates: start: 20110501
  5. LASIX - SLOW RELEASE [Concomitant]
     Indication: CARDIAC FAILURE
     Route: 048
     Dates: start: 20110501
  6. D-CURE (VITAMIN D) [Concomitant]
  7. TAMSULOSIN HCL [Concomitant]
     Indication: PROSTATOMEGALY
     Route: 048
  8. ACETYLSALICYLIC ACID SRT [Concomitant]
     Route: 048
  9. SIMVASTATIN [Concomitant]

REACTIONS (8)
  - LACRIMATION INCREASED [None]
  - MUCOSAL INFLAMMATION [None]
  - PYREXIA [None]
  - VOMITING [None]
  - DECREASED APPETITE [None]
  - RHINORRHOEA [None]
  - SKIN EXFOLIATION [None]
  - DIARRHOEA [None]
